FAERS Safety Report 16879163 (Version 2)
Quarter: 2019Q4

REPORT INFORMATION
  Report Type: Spontaneous
  Country: US (occurrence: US)
  Receive Date: 20191003
  Receipt Date: 20191010
  Transmission Date: 20200122
  Serious: No
  Sender: FDA-Public Use
  Company Number: US-LUPIN PHARMACEUTICALS INC.-2019-06209

PATIENT
  Age: 71 Year
  Sex: Female
  Weight: 53.06 kg

DRUGS (2)
  1. CLOBETASOL PROPIONATE OINTMENT USP, 0.05% [Suspect]
     Active Substance: CLOBETASOL PROPIONATE
     Indication: RASH
     Dosage: 0.05 PERCENT, BID
     Route: 061
     Dates: start: 20190912, end: 20190912
  2. CLOBETASOL PROPIONATE OINTMENT USP, 0.05% [Suspect]
     Active Substance: CLOBETASOL PROPIONATE
     Indication: PRURITUS

REACTIONS (2)
  - Drug ineffective [Unknown]
  - Sticky skin [Unknown]

NARRATIVE: CASE EVENT DATE: 20190912
